FAERS Safety Report 8340090-7 (Version None)
Quarter: 2012Q2

REPORT INFORMATION
  Report Type: 
  Country: None (occurrence: None)
  Receive Date: 20120507
  Receipt Date: 20090528
  Transmission Date: 20120825
  Serious: No
  Sender: FDA-Public Use
  Company Number: US-TEVA-2009006037

PATIENT
  Age: 62 Year
  Sex: Male

DRUGS (1)
  1. TREANDA [Suspect]
     Route: 042

REACTIONS (3)
  - NEUTROPENIA [None]
  - INFECTION [None]
  - PYREXIA [None]
